FAERS Safety Report 7635912-9 (Version None)
Quarter: 2011Q3

REPORT INFORMATION
  Report Type: 
  Country: None (occurrence: None)
  Receive Date: 20110726
  Receipt Date: 20110713
  Transmission Date: 20111222
  Serious: Yes (Hospitalization, Other)
  Sender: FDA-Public Use
  Company Number: CH-ELI_LILLY_AND_COMPANY-CH201107004102

PATIENT
  Age: 28 Year
  Sex: Female

DRUGS (3)
  1. CLONAZEPAM [Concomitant]
     Dosage: 2 MG, QD
     Dates: start: 20100101
  2. FLUOXETINE HYDROCHLORIDE [Suspect]
     Dosage: 20 - 80MG, QD
     Dates: start: 20110101
  3. ALCOHOL [Concomitant]
     Dosage: UNK, QD

REACTIONS (2)
  - MATERNAL EXPOSURE DURING PREGNANCY [None]
  - ALCOHOL POISONING [None]
